FAERS Safety Report 8619606-9 (Version None)
Quarter: 2012Q3

REPORT INFORMATION
  Report Type: 
  Country: None (occurrence: None)
  Receive Date: 20120810
  Receipt Date: 20120730
  Transmission Date: 20120928
  Serious: Yes (Other)
  Sender: FDA-Public Use
  Company Number: 2012ST000610

PATIENT
  Age: 47 Year
  Sex: Female

DRUGS (5)
  1. VALPROIC ACID [Concomitant]
  2. CALCIUM ACETATE [Concomitant]
  3. CARNITOR [Suspect]
     Indication: TOXICITY TO VARIOUS AGENTS
     Dosage: 990 MG;BID;PO
     Route: 048
  4. CARNITOR [Suspect]
     Indication: LIVER DISORDER
     Dosage: 990 MG;BID;PO
     Route: 048
  5. CINACALCET HYDROCHLORIDE [Concomitant]

REACTIONS (5)
  - ASTHENIA [None]
  - ENCEPHALOPATHY [None]
  - TOXICITY TO VARIOUS AGENTS [None]
  - HYPOPHOSPHATAEMIA [None]
  - HYPERPARATHYROIDISM [None]
